FAERS Safety Report 10285283 (Version 2)
Quarter: 2014Q4

REPORT INFORMATION
  Report Type: Spontaneous
  Country: US (occurrence: US)
  Receive Date: 20140708
  Receipt Date: 20141016
  Transmission Date: 20150528
  Serious: No
  Sender: FDA-Public Use
  Company Number: US-009507513-1407USA003857

PATIENT
  Sex: Female

DRUGS (1)
  1. OXYTROL FOR WOMEN [Suspect]
     Active Substance: OXYBUTYNIN
     Indication: URINARY INCONTINENCE
     Dosage: UNK, UNKNOWN
     Route: 062

REACTIONS (5)
  - Pruritus [Unknown]
  - Rash [Unknown]
  - Application site discolouration [Unknown]
  - Application site haemorrhage [Unknown]
  - Drug administered at inappropriate site [Unknown]
